FAERS Safety Report 23307532 (Version 1)
Quarter: 2023Q4

REPORT INFORMATION
  Report Type: Spontaneous
  Country: ES (occurrence: ES)
  Receive Date: 20231218
  Receipt Date: 20231218
  Transmission Date: 20240109
  Serious: Yes (Other)
  Sender: FDA-Public Use
  Company Number: None

PATIENT
  Age: 65 Year
  Sex: Female

DRUGS (1)
  1. PIQRAY [Suspect]
     Active Substance: ALPELISIB
     Indication: Invasive breast carcinoma
     Dosage: 200 MG, QD (200 MG CADA 24H)
     Route: 048
     Dates: start: 20231113, end: 20231115

REACTIONS (1)
  - Skin toxicity [Recovered/Resolved]

NARRATIVE: CASE EVENT DATE: 20231113
